FAERS Safety Report 8860018 (Version 2)
Quarter: 2012Q4

REPORT INFORMATION
  Report Type: 
  Country: PL (occurrence: PL)
  Receive Date: 20121025
  Receipt Date: 20121119
  Transmission Date: 20130627
  Serious: Yes (Hospitalization)
  Sender: FDA-Public Use
  Company Number: PL-COVIDIEN/TYCO HEALTHCARE/MALLINCKRODT-T201203650

PATIENT
  Age: 79 Year
  Sex: Male

DRUGS (1)
  1. OPTIRAY [Suspect]
     Indication: PRODUCT USED FOR UNKNOWN INDICATION
     Dosage: UNK, single
     Route: 048
     Dates: start: 20121011, end: 20121011

REACTIONS (3)
  - Loss of consciousness [Recovered/Resolved]
  - Renal failure [Not Recovered/Not Resolved]
  - Incorrect route of drug administration [Recovered/Resolved]
